FAERS Safety Report 5347901-8 (Version None)
Quarter: 2007Q2

REPORT INFORMATION
  Report Type: 
  Country: None (occurrence: None)
  Receive Date: 20070514
  Receipt Date: 20070329
  Transmission Date: 20071010
  Serious: Yes (Other)
  Sender: FDA-Public Use
  Company Number: 35585

PATIENT
  Age: 21 Year
  Sex: Male

DRUGS (1)
  1. PROPOFOL [Suspect]
     Indication: INTUBATION
     Dates: start: 20070327

REACTIONS (1)
  - DRUG INEFFECTIVE [None]
